FAERS Safety Report 5485734-2 (Version None)
Quarter: 2007Q4

REPORT INFORMATION
  Report Type: 
  Country: None (occurrence: None)
  Receive Date: 20071011
  Receipt Date: 20071011
  Transmission Date: 20080405
  Serious: Yes (Disabling)
  Sender: FDA-Public Use
  Company Number: None

PATIENT
  Age: 49 Year
  Sex: Male

DRUGS (2)
  1. IODIXANOL   320MG  I /ML   GE HEALTHCARE INC. [Suspect]
     Indication: CARDIAC IMAGING PROCEDURE
     Dosage: 90ML  ONE TIME  IV BOLUS
     Route: 040
     Dates: start: 20070926, end: 20070926
  2. IODIXANOL   320MG  I /ML   GE HEALTHCARE INC. [Suspect]
     Indication: SCAN WITH CONTRAST
     Dosage: 90ML  ONE TIME  IV BOLUS
     Route: 040
     Dates: start: 20070926, end: 20070926

REACTIONS (2)
  - PRURITUS [None]
  - SNEEZING [None]
